FAERS Safety Report 6551682-X (Version None)
Quarter: 2010Q1

REPORT INFORMATION
  Report Type: 
  Country: None (occurrence: None)
  Receive Date: 20100126
  Receipt Date: 20100119
  Transmission Date: 20100710
  Serious: Yes (Death, Other)
  Sender: FDA-Public Use
  Company Number: US-BAYER-200825905NA

PATIENT
  Age: 80 Year
  Sex: Female
  Weight: 64 kg

DRUGS (31)
  1. MAGNEVIST [Suspect]
     Indication: NUCLEAR MAGNETIC RESONANCE IMAGING BRAIN
     Dates: start: 20010425, end: 20010425
  2. MAGNEVIST [Suspect]
     Dates: start: 20010503, end: 20010503
  3. OMNISCAN [Suspect]
     Indication: NUCLEAR MAGNETIC RESONANCE IMAGING
     Dosage: ROUTE REPORTED AS ^FIRST VIA DISTAL PORT AND THEN VIA THE PROXIMAL PORT^
     Route: 050
     Dates: start: 20031204, end: 20031204
  4. OMNISCAN [Suspect]
     Dosage: AS USED: 160 ML
     Dates: start: 20050920, end: 20050920
  5. OMNISCAN [Suspect]
     Dates: start: 20030523, end: 20030523
  6. OMNISCAN [Suspect]
     Dosage: DOSE REPORTED AS ^11^ 20ML VIALS
     Dates: start: 20050901, end: 20050901
  7. OPTIMARK [Suspect]
     Indication: NUCLEAR MAGNETIC RESONANCE IMAGING
     Dates: start: 20050816, end: 20050816
  8. MULTIHANCE [Suspect]
     Indication: NUCLEAR MAGNETIC RESONANCE IMAGING
  9. PROHANCE [Suspect]
     Indication: NUCLEAR MAGNETIC RESONANCE IMAGING
  10. UNSPECIFIED GADOLINIUM [Suspect]
     Indication: NUCLEAR MAGNETIC RESONANCE IMAGING ABDOMINAL
     Dates: start: 20050816, end: 20050816
  11. UNSPECIFIED GADOLINIUM [Suspect]
     Dates: start: 20010425, end: 20010425
  12. UNSPECIFIED GADOLINIUM [Suspect]
     Dates: start: 20010305, end: 20010305
  13. UNSPECIFIED GADOLINIUM [Suspect]
     Dates: start: 20010503, end: 20010503
  14. ASPIRIN [Concomitant]
  15. NIFEREX [Concomitant]
  16. COREG [Concomitant]
     Route: 048
  17. FOLIC ACID [Concomitant]
  18. LOVASTATIN [Concomitant]
  19. DILTIAZEM [Concomitant]
  20. POTASSIUM [Concomitant]
     Dosage: DOSE: 20 MEQ/L
  21. PLENDIL [Concomitant]
  22. K-DUR [Concomitant]
  23. NEPHROVITE [Concomitant]
  24. EPOGEN [Concomitant]
     Dosage: WITH DIALYSIS AS PER DIALYSIS PROTOCOL (8000 UNITS TIW AS OF MAR 2001)
  25. VENOFER [Concomitant]
     Dosage: WITH DIALYSIS AS PER DIALYSIS PROTOCOL
  26. ZEMPLAR [Concomitant]
     Dosage: WITH DIALYSIS AS PER DIALYSIS PROTOCOL
  27. RENAGEL [Concomitant]
     Dosage: START DATE UNKNOWN; NOTED AS OF OCT 2005
  28. AMIODARONE [Concomitant]
  29. FUROSEMIDE [Concomitant]
  30. IMDUR [Concomitant]
  31. HYDRALAZINE [Concomitant]

REACTIONS (20)
  - ANXIETY [None]
  - ARTHRALGIA [None]
  - DRY SKIN [None]
  - EMOTIONAL DISTRESS [None]
  - ERYTHEMA [None]
  - EXTREMITY CONTRACTURE [None]
  - FATIGUE [None]
  - INJURY [None]
  - JOINT RANGE OF MOTION DECREASED [None]
  - JOINT STIFFNESS [None]
  - MUSCLE RIGIDITY [None]
  - MUSCULOSKELETAL STIFFNESS [None]
  - NEPHROGENIC SYSTEMIC FIBROSIS [None]
  - OEDEMA [None]
  - PAIN [None]
  - PRURITUS [None]
  - SKIN HYPERTROPHY [None]
  - SKIN INDURATION [None]
  - SKIN TIGHTNESS [None]
  - SKIN WRINKLING [None]
